FAERS Safety Report 9045790 (Version 1)
Quarter: 2013Q1

REPORT INFORMATION
  Report Type: Report from Study
  Country: US (occurrence: US)
  Receive Date: 20130201
  Receipt Date: 20130201
  Transmission Date: 20140127
  Serious: No
  Sender: FDA-Public Use
  Company Number: US-ABBOTT-12P-163-1017754-00

PATIENT
  Sex: Female

DRUGS (9)
  1. HUMIRA [Suspect]
     Indication: RHEUMATOID ARTHRITIS
  2. NAPROXEN [Concomitant]
     Indication: PAIN
     Route: 048
  3. ZOLPIDEM [Concomitant]
     Indication: INSOMNIA
  4. FOLIC ACID [Concomitant]
     Indication: CHEILITIS
     Route: 048
  5. OXYGEN [Concomitant]
     Indication: DYSPNOEA
     Dosage: 3 LITERS PER NASAL CANULA
  6. PROAIR [Concomitant]
     Indication: DYSPNOEA
  7. ALBUTEROL [Concomitant]
     Indication: DYSPNOEA
     Route: 048
  8. SYMBICORT [Concomitant]
     Indication: DYSPNOEA
     Route: 048
  9. BUDEPRION [Concomitant]
     Indication: DEPRESSION
     Route: 048

REACTIONS (7)
  - Aphonia [Recovering/Resolving]
  - Pruritus [Not Recovered/Not Resolved]
  - Burning sensation [Unknown]
  - Urticaria [Unknown]
  - Injection site rash [Unknown]
  - Injection site pruritus [Unknown]
  - Injection site pain [Unknown]
